FAERS Safety Report 5500983-2 (Version None)
Quarter: 2007Q4

REPORT INFORMATION
  Report Type: 
  Country: None (occurrence: None)
  Receive Date: 20071029
  Receipt Date: 20071020
  Transmission Date: 20080405
  Serious: Yes (Other)
  Sender: FDA-Public Use
  Company Number: US-SHR-US-2007-040036

PATIENT
  Age: 15 Year
  Sex: Female
  Weight: 76.19 kg

DRUGS (5)
  1. YAZ [Suspect]
     Dosage: 1 TAB/DAY
     Route: 048
     Dates: start: 20070901, end: 20071009
  2. PSEUDOBENT [Concomitant]
     Dosage: 400 MG, 2X/DAY
     Dates: start: 20050101
  3. ZYRTEC-D 12 HOUR [Concomitant]
     Dates: start: 20050101
  4. SINGULAIR [Concomitant]
     Indication: ASTHMA
     Dosage: 10 MG, 1X/DAY
     Dates: start: 20050101
  5. ADVAIR DISKUS 100/50 [Concomitant]
     Indication: ASTHMA
     Dosage: UNK, 2X/DAY
     Dates: start: 20050101

REACTIONS (3)
  - SYSTEMIC MYCOSIS [None]
  - ULCER [None]
  - VULVOVAGINAL MYCOTIC INFECTION [None]
